FAERS Safety Report 24982570 (Version 2)
Quarter: 2025Q1

REPORT INFORMATION
  Report Type: Report from Study
  Country: US (occurrence: US)
  Receive Date: 20250218
  Receipt Date: 20250314
  Transmission Date: 20250409
  Serious: Yes (Other)
  Sender: ABBVIE
  Company Number: US-ABBVIE-6113483

PATIENT
  Age: 73 Year
  Sex: Male
  Weight: 105.23 kg

DRUGS (12)
  1. SKYRIZI [Suspect]
     Active Substance: RISANKIZUMAB-RZAA
     Indication: Psoriatic arthropathy
     Route: 058
     Dates: start: 202406
  2. SKYRIZI [Suspect]
     Active Substance: RISANKIZUMAB-RZAA
     Indication: Psoriasis
  3. LISINOPRIL [Concomitant]
     Active Substance: LISINOPRIL
     Indication: Hypertension
  4. ELIQUIS [Concomitant]
     Active Substance: APIXABAN
     Indication: Atrial fibrillation
  5. TAMSULOSIN [Concomitant]
     Active Substance: TAMSULOSIN
     Indication: Blood cholesterol
  6. ASPIRIN [Concomitant]
     Active Substance: ASPIRIN
     Indication: Product used for unknown indication
  7. VITAMIN C [Concomitant]
     Active Substance: ASCORBIC ACID
     Indication: Vitamin supplementation
  8. ATORVASTATIN [Concomitant]
     Active Substance: ATORVASTATIN
     Indication: Cardiac valve disease
  9. FISH OIL [Concomitant]
     Active Substance: FISH OIL
     Indication: Supplementation therapy
  10. SOTALOL [Concomitant]
     Active Substance: SOTALOL
     Indication: Cardiac valve disease
  11. SERTRALINE [Concomitant]
     Active Substance: SERTRALINE HYDROCHLORIDE
     Indication: Cardiac valve disease
  12. CEFDINIR [Concomitant]
     Active Substance: CEFDINIR
     Indication: Infection

REACTIONS (7)
  - Fungal foot infection [Recovered/Resolved]
  - Procedural pain [Recovered/Resolved]
  - Peripheral swelling [Recovering/Resolving]
  - Joint lock [Recovered/Resolved]
  - Joint stiffness [Recovering/Resolving]
  - Arthralgia [Recovering/Resolving]
  - Onychomadesis [Unknown]

NARRATIVE: CASE EVENT DATE: 20240101
